FAERS Safety Report 8773482 (Version 2)
Quarter: 2012Q4

REPORT INFORMATION
  Report Type: 
  Country: US (occurrence: US)
  Receive Date: 20120907
  Receipt Date: 20121001
  Transmission Date: 20130627
  Serious: Yes (Disabling, Other)
  Sender: FDA-Public Use
  Company Number: US-GLAXOSMITHKLINE-A0991310A

PATIENT
  Age: 38 Year
  Sex: Female

DRUGS (5)
  1. LAMICTAL [Suspect]
     Indication: CONVULSION
     Dosage: 250MG Twice per day
     Route: 048
  2. KEPPRA [Concomitant]
  3. SYNTHROID [Concomitant]
  4. FOLIC ACID [Concomitant]
  5. PROMETRIUM [Concomitant]

REACTIONS (1)
  - Deafness [Not Recovered/Not Resolved]
